FAERS Safety Report 9206127 (Version 1)
Quarter: 2013Q1

REPORT INFORMATION
  Report Type: Spontaneous
  Country: US (occurrence: None)
  Receive Date: 20120731
  Receipt Date: 20120731
  Transmission Date: 20140127
  Serious: No
  Sender: FDA-Public Use
  Company Number: US201111002989

PATIENT
  Age: 54 Year
  Sex: Female

DRUGS (1)
  1. BYETTA [Suspect]
     Route: 058
     Dates: start: 201109

REACTIONS (10)
  - Feeling hot [None]
  - Hyperhidrosis [None]
  - Presyncope [None]
  - Injection site erythema [None]
  - Injection site urticaria [None]
  - Injection site pain [None]
  - Injection site injury [None]
  - Blood glucose decreased [None]
  - Injection site haematoma [None]
  - Tremor [None]
